FAERS Safety Report 8227357-8 (Version None)
Quarter: 2012Q1

REPORT INFORMATION
  Report Type: 
  Country: None (occurrence: None)
  Receive Date: 20120322
  Receipt Date: 20120316
  Transmission Date: 20120608
  Serious: Yes (Hospitalization)
  Sender: FDA-Public Use
  Company Number: US-BAYER-2011-085995

PATIENT
  Age: 26 Year
  Sex: Female
  Weight: 73 kg

DRUGS (4)
  1. TRAZODONE HCL [Concomitant]
     Indication: DEPRESSION
     Dosage: UNK
     Dates: start: 20090601, end: 20100101
  2. MULTI-VITAMIN [Concomitant]
     Indication: VITAMIN SUPPLEMENTATION
     Dosage: UNK
     Dates: start: 20090301, end: 20090901
  3. YAZ [Suspect]
     Indication: CONTRACEPTION
     Dosage: UNK
     Dates: start: 20090301, end: 20091101
  4. ATENOLOL [Concomitant]
     Indication: HYPERTENSION
     Dosage: UNK
     Dates: start: 20090101, end: 20090801

REACTIONS (9)
  - PANCREATITIS [None]
  - INSOMNIA [None]
  - CHOLELITHIASIS [None]
  - INJURY [None]
  - GALLBLADDER INJURY [None]
  - CHOLECYSTITIS CHRONIC [None]
  - PAIN [None]
  - RENAL CYST [None]
  - POSTOPERATIVE WOUND INFECTION [None]
